FAERS Safety Report 15619075 (Version 1)
Quarter: 2018Q4

REPORT INFORMATION
  Report Type: Report from Study
  Country: US (occurrence: US)
  Receive Date: 20181114
  Receipt Date: 20181114
  Transmission Date: 20190205
  Serious: Yes (Hospitalization, Other)
  Sender: FDA-Public Use
  Company Number: US-SA-2018SA307248

PATIENT
  Age: 65 Year
  Sex: Female

DRUGS (3)
  1. TRESIBA [Concomitant]
     Active Substance: INSULIN DEGLUDEC
  2. NOVOLOG [Concomitant]
     Active Substance: INSULIN ASPART
     Dosage: UNK
  3. INSULIN GLARGINE [Suspect]
     Active Substance: INSULIN GLARGINE
     Indication: DIABETES MELLITUS
     Dosage: 60 UNITS IN THE MORNING AND 90 UNITS IN THE NIGHT, BID
     Route: 058

REACTIONS (17)
  - Nephropathy [Not Recovered/Not Resolved]
  - Visual impairment [Not Recovered/Not Resolved]
  - Vertigo [Recovered/Resolved]
  - Muscle spasms [Recovered/Resolved]
  - Dehydration [Recovered/Resolved]
  - Head injury [Recovered/Resolved]
  - Glycosylated haemoglobin increased [Not Recovered/Not Resolved]
  - Hypotension [Recovering/Resolving]
  - Hyperglycaemia [Recovered/Resolved]
  - Renal cyst [Recovered/Resolved]
  - Gait disturbance [Recovered/Resolved]
  - Peripheral swelling [Recovered/Resolved]
  - Spinal disorder [Recovered/Resolved]
  - Neuropathy peripheral [Not Recovered/Not Resolved]
  - Hypertonic bladder [Not Recovered/Not Resolved]
  - Inability to afford medication [Unknown]
  - Pain in extremity [Recovered/Resolved]

NARRATIVE: CASE EVENT DATE: 2013
